FAERS Safety Report 22531944 (Version 1)
Quarter: 2023Q2

REPORT INFORMATION
  Report Type: Spontaneous
  Country: US (occurrence: None)
  Receive Date: 20230606
  Receipt Date: 20230606
  Transmission Date: 20230721
  Serious: No
  Sender: FDA-Public Use
  Company Number: None

PATIENT
  Age: 83 Year
  Sex: Male

DRUGS (21)
  1. ERLEADA [Suspect]
     Active Substance: APALUTAMIDE
     Indication: Prostate cancer
     Dosage: OTHER QUANTITY : 4T;?FREQUENCY : DAILY;?
     Route: 048
  2. AMLODIPINE [Concomitant]
     Active Substance: AMLODIPINE BESYLATE
  3. ERLADA [Concomitant]
  4. ASPIRIN [Concomitant]
     Active Substance: ASPIRIN
  5. PLAVIX [Concomitant]
     Active Substance: CLOPIDOGREL BISULFATE
  6. NITROSTAT [Concomitant]
     Active Substance: NITROGLYCERIN
  7. BACTRIM [Concomitant]
     Active Substance: SULFAMETHOXAZOLE\TRIMETHOPRIM
  8. INSULIN NOS [Concomitant]
     Active Substance: INSULIN NOS
  9. FARXIGA [Concomitant]
     Active Substance: DAPAGLIFLOZIN PROPANEDIOL
  10. LEXAPRO [Concomitant]
     Active Substance: ESCITALOPRAM OXALATE
  11. LEVOCETIRIZINE [Concomitant]
     Active Substance: LEVOCETIRIZINE
  12. CEFDINIR [Concomitant]
     Active Substance: CEFDINIR
  13. XYZAL [Concomitant]
     Active Substance: LEVOCETIRIZINE DIHYDROCHLORIDE
  14. NAPROXEN [Concomitant]
     Active Substance: NAPROXEN
  15. PREGABALIN [Concomitant]
     Active Substance: PREGABALIN
  16. CLODIDOGREL [Concomitant]
  17. MEMANTINE [Concomitant]
     Active Substance: MEMANTINE
  18. ENTRESTO [Concomitant]
     Active Substance: SACUBITRIL\VALSARTAN
  19. SPIRONOLACTONE [Concomitant]
     Active Substance: SPIRONOLACTONE
  20. ATORVASTATIN [Concomitant]
     Active Substance: ATORVASTATIN
  21. METOPROLOL [Concomitant]
     Active Substance: METOPROLOL

REACTIONS (3)
  - Myocardial infarction [None]
  - Prostate cancer [None]
  - Disease progression [None]

NARRATIVE: CASE EVENT DATE: 20230530
